FAERS Safety Report 17220479 (Version 3)
Quarter: 2025Q3

REPORT INFORMATION
  Report Type: Spontaneous
  Country: EU (occurrence: EU)
  Receive Date: 20191231
  Receipt Date: 20250728
  Transmission Date: 20251020
  Serious: Yes (Hospitalization, Other)
  Sender: MYLAN
  Company Number: EU-ACTELION-A-CH2019-196123

PATIENT
  Age: 30 Week

DRUGS (11)
  1. SILDENAFIL [Suspect]
     Active Substance: SILDENAFIL
     Indication: Product used for unknown indication
  2. CEFTRIAXONE [Suspect]
     Active Substance: CEFTRIAXONE
     Indication: Product used for unknown indication
  3. EPOPROSTENOL SODIUM [Suspect]
     Active Substance: EPOPROSTENOL SODIUM
     Indication: Product used for unknown indication
  4. VENTAVIS [Suspect]
     Active Substance: ILOPROST
     Indication: Product used for unknown indication
  5. DILTIAZEM [Suspect]
     Active Substance: DILTIAZEM
     Indication: Product used for unknown indication
  6. MILRINONE [Concomitant]
     Active Substance: MILRINONE
     Indication: Product used for unknown indication
  7. LEVOSIMENDAN [Concomitant]
     Active Substance: LEVOSIMENDAN
     Indication: Product used for unknown indication
  8. NITRIC OXIDE [Concomitant]
     Active Substance: NITRIC OXIDE
     Indication: Product used for unknown indication
  9. ILOPROST [Concomitant]
     Active Substance: ILOPROST
     Indication: Product used for unknown indication
  10. EPOPROSTENOL [Concomitant]
     Active Substance: EPOPROSTENOL
     Indication: Product used for unknown indication
  11. BOSENTAN [Concomitant]
     Active Substance: BOSENTAN
     Indication: Product used for unknown indication

REACTIONS (4)
  - Premature baby [Unknown]
  - Endotracheal intubation [Unknown]
  - Intensive care [Unknown]
  - Foetal exposure during pregnancy [Recovered/Resolved]
